FAERS Safety Report 15259078 (Version 1)
Quarter: 2018Q3

REPORT INFORMATION
  Report Type: Report from Study
  Country: US (occurrence: US)
  Receive Date: 20180809
  Receipt Date: 20180809
  Transmission Date: 20181010
  Serious: Yes (Hospitalization, Other)
  Sender: FDA-Public Use
  Company Number: US-ROCHE-2165921

PATIENT
  Sex: Female

DRUGS (2)
  1. RITUXAN [Suspect]
     Active Substance: RITUXIMAB
     Indication: PRODUCT USED FOR UNKNOWN INDICATION
     Route: 065
     Dates: start: 2010
  2. CELLCEPT [Suspect]
     Active Substance: MYCOPHENOLATE MOFETIL\MYCOPHENOLATE MOFETIL HYDROCHLORIDE
     Indication: DEMYELINATION
     Route: 048

REACTIONS (11)
  - Anal incontinence [Unknown]
  - Urinary incontinence [Unknown]
  - Headache [Recovered/Resolved]
  - Gait disturbance [Unknown]
  - Off label use [Unknown]
  - Hypoaesthesia [Unknown]
  - Demyelination [Unknown]
  - Intentional product use issue [Unknown]
  - Dizziness [Unknown]
  - Sinusitis [Unknown]
  - Pain in extremity [Unknown]
